FAERS Safety Report 5001108-2 (Version None)
Quarter: 2006Q2

REPORT INFORMATION
  Report Type: 
  Country: None (occurrence: None)
  Receive Date: 20060512
  Receipt Date: 20060504
  Transmission Date: 20061013
  Serious: Yes (Hospitalization)
  Sender: FDA-Public Use
  Company Number: FR-AVENTIS-200611715FR

PATIENT
  Age: 66 Year
  Sex: Male

DRUGS (7)
  1. AMARYL [Suspect]
     Indication: DIABETES MELLITUS
     Route: 048
     Dates: end: 20060324
  2. COAPROVEL [Suspect]
     Indication: ESSENTIAL HYPERTENSION
     Route: 048
     Dates: end: 20060324
  3. METFORMIN [Suspect]
     Indication: DIABETES MELLITUS
     Route: 048
     Dates: end: 20060324
  4. LEVOTHYROX [Suspect]
     Route: 048
  5. TAHOR [Suspect]
     Indication: HYPERCHOLESTEROLAEMIA
     Route: 048
  6. ZANIDIP [Suspect]
     Indication: ESSENTIAL HYPERTENSION
     Route: 048
  7. UN-ALFA [Concomitant]
     Dates: end: 20060324

REACTIONS (2)
  - RENAL FAILURE ACUTE [None]
  - TACHYCARDIA [None]
